FAERS Safety Report 18999736 (Version 16)
Quarter: 2024Q3

REPORT INFORMATION
  Report Type: Spontaneous
  Country: HR (occurrence: HR)
  Receive Date: 20210311
  Receipt Date: 20240806
  Transmission Date: 20241017
  Serious: Yes (Other)
  Sender: PFIZER
  Company Number: HR-002147023-NVSC2021HR042645

PATIENT
  Age: 56 Year
  Sex: Female

DRUGS (64)
  1. METHYLPREDNISOLONE [Suspect]
     Active Substance: METHYLPREDNISOLONE
     Indication: Pustular psoriasis
     Dosage: 8 MILLIGRAM, QD
     Dates: start: 202008
  2. METHYLPREDNISOLONE [Suspect]
     Active Substance: METHYLPREDNISOLONE
     Dosage: 10 MILLIGRAM
     Dates: start: 202008
  3. METHYLPREDNISOLONE [Suspect]
     Active Substance: METHYLPREDNISOLONE
     Dosage: 8 MILLIGRAM, QD
  4. BILASTINE [Suspect]
     Active Substance: BILASTINE
     Dosage: UNK
     Route: 048
  5. BILASTINE [Suspect]
     Active Substance: BILASTINE
     Dosage: UNK
  6. BILASTINE [Suspect]
     Active Substance: BILASTINE
     Dosage: UNK
  7. BILASTINE [Suspect]
     Active Substance: BILASTINE
     Dosage: UNK
     Route: 048
  8. BILASTINE [Suspect]
     Active Substance: BILASTINE
     Dosage: UNK
  9. PANTOPRAZOLE [Suspect]
     Active Substance: PANTOPRAZOLE
     Dosage: 20 MILLIGRAM, BID
  10. PANTOPRAZOLE [Suspect]
     Active Substance: PANTOPRAZOLE
     Dosage: 20 MILLIGRAM, BID
  11. PANTOPRAZOLE [Suspect]
     Active Substance: PANTOPRAZOLE
     Dosage: 20 MILLIGRAM, BID
  12. PANTOPRAZOLE [Suspect]
     Active Substance: PANTOPRAZOLE
     Dosage: UNK
  13. PANTOPRAZOLE [Suspect]
     Active Substance: PANTOPRAZOLE
     Dosage: UNK
  14. PANTOPRAZOLE [Suspect]
     Active Substance: PANTOPRAZOLE
     Dosage: UNK
  15. ADALIMUMAB [Suspect]
     Active Substance: ADALIMUMAB
     Indication: Pustular psoriasis
     Dosage: UNK
     Route: 058
  16. ADALIMUMAB [Suspect]
     Active Substance: ADALIMUMAB
     Dosage: UNK
  17. ADALIMUMAB [Suspect]
     Active Substance: ADALIMUMAB
     Dosage: UNK
  18. ADALIMUMAB [Suspect]
     Active Substance: ADALIMUMAB
     Dosage: UNK
  19. DICLOFENAC [Suspect]
     Active Substance: DICLOFENAC
     Dosage: UNK
  20. DICLOFENAC [Suspect]
     Active Substance: DICLOFENAC
     Dosage: UNK
  21. DICLOFENAC [Suspect]
     Active Substance: DICLOFENAC
     Dosage: UNK
  22. METHOTREXATE [Suspect]
     Active Substance: METHOTREXATE
     Indication: Generalised pustular psoriasis
     Dosage: 15 MILLIGRAM
     Dates: start: 202005
  23. COSENTYX [Suspect]
     Active Substance: SECUKINUMAB
     Indication: Pustular psoriasis
     Dosage: UNK
  24. COSENTYX [Suspect]
     Active Substance: SECUKINUMAB
     Dosage: UNK
  25. COSENTYX [Suspect]
     Active Substance: SECUKINUMAB
     Dosage: UNK
  26. COSENTYX [Suspect]
     Active Substance: SECUKINUMAB
     Dosage: UNK
  27. APREMILAST [Suspect]
     Active Substance: APREMILAST
     Indication: Pustular psoriasis
     Dosage: UNK
  28. APREMILAST [Suspect]
     Active Substance: APREMILAST
     Dosage: UNK
  29. APREMILAST [Suspect]
     Active Substance: APREMILAST
     Dosage: UNK
  30. APREMILAST [Suspect]
     Active Substance: APREMILAST
     Dosage: UNK
  31. RISANKIZUMAB [Suspect]
     Active Substance: RISANKIZUMAB
     Indication: Pustular psoriasis
     Dosage: UNK, Q3MONTHS
     Route: 058
  32. RISANKIZUMAB [Suspect]
     Active Substance: RISANKIZUMAB
     Dosage: UNK, Q3MONTHS
     Route: 058
  33. RISANKIZUMAB [Suspect]
     Active Substance: RISANKIZUMAB
     Dosage: UNK, Q3MONTHS
     Route: 058
  34. PIOGLITAZONE [Suspect]
     Active Substance: PIOGLITAZONE
     Dosage: UNK
  35. PIOGLITAZONE [Suspect]
     Active Substance: PIOGLITAZONE
     Dosage: UNK
  36. PIOGLITAZONE [Suspect]
     Active Substance: PIOGLITAZONE
     Dosage: UNK
  37. PIOGLITAZONE [Suspect]
     Active Substance: PIOGLITAZONE
     Dosage: UNK
  38. PIOGLITAZONE [Suspect]
     Active Substance: PIOGLITAZONE
     Dosage: UNK
  39. PIOGLITAZONE [Suspect]
     Active Substance: PIOGLITAZONE
     Dosage: UNK
  40. LORATADINE [Suspect]
     Active Substance: LORATADINE
     Indication: Generalised pustular psoriasis
     Dosage: UNK
  41. LORATADINE [Suspect]
     Active Substance: LORATADINE
     Dosage: UNK
  42. LORATADINE [Suspect]
     Active Substance: LORATADINE
     Dosage: UNK
  43. KETOPROFEN [Suspect]
     Active Substance: KETOPROFEN
     Dosage: UNK
     Route: 016
  44. KETOPROFEN [Suspect]
     Active Substance: KETOPROFEN
     Dosage: UNK
     Route: 016
  45. KETOPROFEN [Suspect]
     Active Substance: KETOPROFEN
     Dosage: UNK
     Route: 016
  46. KETOPROFEN [Suspect]
     Active Substance: KETOPROFEN
     Dosage: UNK
  47. DESLORATADINE [Suspect]
     Active Substance: DESLORATADINE
     Dosage: UNK
  48. DESLORATADINE [Suspect]
     Active Substance: DESLORATADINE
     Dosage: 10 MILLIGRAM
  49. DESLORATADINE [Suspect]
     Active Substance: DESLORATADINE
     Dosage: 10 MILLIGRAM
  50. DESLORATADINE [Suspect]
     Active Substance: DESLORATADINE
     Dosage: UNK
  51. IBUPROFEN [Suspect]
     Active Substance: IBUPROFEN
     Dosage: UNK
  52. IBUPROFEN [Suspect]
     Active Substance: IBUPROFEN
     Dosage: UNK
  53. IBUPROFEN [Suspect]
     Active Substance: IBUPROFEN
     Dosage: UNK
  54. IBUPROFEN [Suspect]
     Active Substance: IBUPROFEN
     Dosage: UNK
     Route: 016
  55. ACITRETIN [Suspect]
     Active Substance: ACITRETIN
     Indication: Pustular psoriasis
     Dosage: UNK
  56. ACITRETIN [Suspect]
     Active Substance: ACITRETIN
     Dosage: UNK
  57. ACITRETIN [Suspect]
     Active Substance: ACITRETIN
     Dosage: UNK
  58. ACITRETIN [Suspect]
     Active Substance: ACITRETIN
     Dosage: UNK
  59. ACITRETIN [Suspect]
     Active Substance: ACITRETIN
     Dosage: UNK
  60. ACITRETIN [Suspect]
     Active Substance: ACITRETIN
     Dosage: UNK
  61. ACITRETIN [Suspect]
     Active Substance: ACITRETIN
     Dosage: UNK
  62. CETIRIZINE HYDROCHLORIDE [Suspect]
     Active Substance: CETIRIZINE HYDROCHLORIDE
     Dosage: 10 MILLIGRAM
  63. CETIRIZINE HYDROCHLORIDE [Suspect]
     Active Substance: CETIRIZINE HYDROCHLORIDE
     Dosage: 10 MILLIGRAM
  64. COSENTYX [Concomitant]
     Active Substance: SECUKINUMAB
     Indication: Generalised pustular psoriasis
     Dosage: UNK

REACTIONS (13)
  - Inflammatory bowel disease [Recovered/Resolved]
  - Face oedema [Unknown]
  - Asthenia [Unknown]
  - Arthralgia [Unknown]
  - Diarrhoea [Recovered/Resolved]
  - Urticaria [Unknown]
  - Fatigue [Unknown]
  - Myalgia [Unknown]
  - Erythema [Recovering/Resolving]
  - Weight decreased [Recovering/Resolving]
  - Faecal calprotectin increased [Unknown]
  - Off label use [Unknown]
  - Medication error [Unknown]

NARRATIVE: CASE EVENT DATE: 20191101
